FAERS Safety Report 21403356 (Version 1)
Quarter: 2022Q4

REPORT INFORMATION
  Report Type: Spontaneous
  Country: US (occurrence: None)
  Receive Date: 20221001
  Receipt Date: 20221001
  Transmission Date: 20230112
  Serious: Yes (Life-Threatening, Hospitalization, Disabling)
  Sender: FDA-Public Use
  Company Number: None

PATIENT
  Age: 49 Year
  Sex: Male
  Weight: 78.75 kg

DRUGS (4)
  1. AIMOVIG [Suspect]
     Active Substance: ERENUMAB-AOOE
     Indication: Migraine
     Dosage: OTHER QUANTITY : 4 INJECTION(S);?OTHER FREQUENCY : ONCE A MONTH;?OTHER ROUTE : INJECTED INTO THE SKI
     Route: 050
     Dates: start: 20190715, end: 20191015
  2. LITHIUM [Concomitant]
  3. LEXAPRO [Concomitant]
  4. VITAMIN D [Concomitant]
     Active Substance: VITAMIN D NOS

REACTIONS (10)
  - Paranoia [None]
  - Affective disorder [None]
  - Insomnia [None]
  - Disturbance in attention [None]
  - Feeling abnormal [None]
  - Thinking abnormal [None]
  - Suspiciousness [None]
  - Suicidal ideation [None]
  - Impaired work ability [None]
  - Psychotic disorder [None]

NARRATIVE: CASE EVENT DATE: 20190815
